FAERS Safety Report 13346373 (Version 2)
Quarter: 2017Q2

REPORT INFORMATION
  Report Type: Report from Study
  Country: US (occurrence: US)
  Receive Date: 20170317
  Receipt Date: 20170605
  Transmission Date: 20170830
  Serious: Yes (Hospitalization, Other)
  Sender: FDA-Public Use
  Company Number: US-AMGEN-USASL2017040388

PATIENT
  Age: 80 Year
  Sex: Female

DRUGS (1)
  1. REPATHA [Suspect]
     Active Substance: EVOLOCUMAB
     Indication: HYPERCHOLESTEROLAEMIA
     Dosage: 420 MG/3.5 ML, QMO
     Route: 065
     Dates: start: 20170301, end: 201703

REACTIONS (3)
  - Oxygen therapy [Unknown]
  - Adverse event [Unknown]
  - Respiratory failure [Unknown]

NARRATIVE: CASE EVENT DATE: 201703
